FAERS Safety Report 4394218-4 (Version None)
Quarter: 2004Q3

REPORT INFORMATION
  Report Type: 
  Country: None (occurrence: None)
  Receive Date: 20040712
  Receipt Date: 20040617
  Transmission Date: 20050211
  Serious: Yes (Life-Threatening, Other)
  Sender: FDA-Public Use
  Company Number: JP-MERCK-0406USA01869

PATIENT
  Age: 66 Year
  Sex: Male

DRUGS (19)
  1. [THERAPY UNSPECIFIED] [Concomitant]
     Route: 042
     Dates: start: 20040604, end: 20040608
  2. [THERAPY UNSPECIFIED] [Concomitant]
     Route: 065
     Dates: start: 20040611
  3. ALBUMINATE [Concomitant]
     Route: 042
     Dates: start: 20040611, end: 20040611
  4. AMINO ACIDS (UNSPECIFIED) AND CARBOHYDRATES (UNSPECIFIED) AND ELECTROL [Concomitant]
     Route: 065
     Dates: start: 20040611
  5. BLOOD, PLASMA [Concomitant]
     Route: 042
     Dates: start: 20040611, end: 20040612
  6. MARCAINE [Concomitant]
     Route: 065
     Dates: start: 20040605, end: 20040607
  7. OTSUKA CEZ-MC [Concomitant]
     Route: 042
     Dates: start: 20040604, end: 20040606
  8. OTSUKA CEZ-MC [Concomitant]
     Route: 042
     Dates: start: 20040611, end: 20040611
  9. PRIMAXIN [Suspect]
     Route: 042
     Dates: start: 20040612, end: 20040614
  10. STRONGER NEO-MINOPHAGEN C [Concomitant]
     Route: 042
     Dates: start: 20040612, end: 20040614
  11. PREDOPA [Concomitant]
     Route: 065
     Dates: start: 20040611, end: 20040614
  12. ELECTROLYTES (UNSPECIFIED) AND SODIUM LACTATE [Concomitant]
     Route: 065
  13. LASIX [Concomitant]
     Route: 042
     Dates: start: 20040611, end: 20040611
  14. LASIX [Concomitant]
     Route: 042
     Dates: start: 20040612, end: 20040613
  15. FOY [Concomitant]
     Route: 042
     Dates: start: 20040611, end: 20040614
  16. GLOBULIN, IMMUNE [Concomitant]
     Route: 042
     Dates: start: 20040611, end: 20040613
  17. MINERALS (UNSPECIFIED) [Concomitant]
     Route: 042
     Dates: start: 20040604, end: 20040608
  18. MIRACLID [Concomitant]
     Route: 042
     Dates: start: 20040611, end: 20040615
  19. VITAMINS (UNSPECIFIED) [Concomitant]
     Route: 042
     Dates: start: 20040604, end: 20040608

REACTIONS (6)
  - CARDIAC ARREST [None]
  - CHEST PAIN [None]
  - ELECTROCARDIOGRAM QT PROLONGED [None]
  - ELECTROCARDIOGRAM T WAVE INVERSION [None]
  - VENTRICULAR EXTRASYSTOLES [None]
  - VENTRICULAR TACHYCARDIA [None]
